FAERS Safety Report 21590196 (Version 1)
Quarter: 2022Q4

REPORT INFORMATION
  Report Type: Spontaneous
  Country: US (occurrence: None)
  Receive Date: 20221111
  Receipt Date: 20221111
  Transmission Date: 20230113
  Serious: Yes (Hospitalization, Disabling)
  Sender: FDA-Public Use
  Company Number: None

PATIENT
  Age: 59 Year
  Sex: Male
  Weight: 72 kg

DRUGS (2)
  1. CLONAZEPAM [Suspect]
     Active Substance: CLONAZEPAM
     Indication: Insomnia
     Dosage: 60 TABLETS AT BEDTIME ORAL
     Route: 048
     Dates: start: 20220101, end: 20221101
  2. LISINOPRIL [Concomitant]
     Active Substance: LISINOPRIL

REACTIONS (6)
  - Blood pressure increased [None]
  - Headache [None]
  - Vision blurred [None]
  - Hypoaesthesia [None]
  - Insomnia [None]
  - Product tampering [None]

NARRATIVE: CASE EVENT DATE: 20221005
